FAERS Safety Report 23501912 (Version 11)
Quarter: 2024Q3

REPORT INFORMATION
  Report Type: Spontaneous
  Country: US (occurrence: US)
  Receive Date: 20240208
  Receipt Date: 20240711
  Transmission Date: 20241017
  Serious: Yes (Other)
  Sender: PFIZER
  Company Number: US-PFIZER INC-PV202400018282

PATIENT
  Age: 74 Year
  Sex: Male
  Weight: 77.11 kg

DRUGS (11)
  1. IBRANCE [Suspect]
     Active Substance: PALBOCICLIB
     Dosage: 100 MG, 1X/DAY
     Route: 048
  2. IBRANCE [Suspect]
     Active Substance: PALBOCICLIB
     Dosage: 125 MG TABLETS, ONE A DAY AT THE SAME TIME
     Dates: start: 20240129
  3. IBRANCE [Suspect]
     Active Substance: PALBOCICLIB
     Dosage: 100 MG, 3 WEEKS ON AND 1 WEEK OFF
     Route: 048
  4. IBRANCE [Suspect]
     Active Substance: PALBOCICLIB
     Dosage: 100 MG
  5. ALFUZOSIN [Concomitant]
     Active Substance: ALFUZOSIN
     Indication: Prostatitis
     Dosage: 10MG TABLET ONCE A DAY
     Route: 048
  6. AMLODIPINE [Concomitant]
     Active Substance: AMLODIPINE BESYLATE
     Dosage: 5 MG, 1X/DAY
     Route: 048
  7. ASPIRIN [Concomitant]
     Active Substance: ASPIRIN
     Dosage: 81MG LITTLE TABLET ONCE A DAY BY MOUTH
     Route: 048
  8. ATORVASTATIN [Concomitant]
     Active Substance: ATORVASTATIN
     Indication: Blood cholesterol abnormal
     Dosage: 20MG TABLET ONCE A DAY BY MOUTH
     Route: 048
  9. CARVEDILOL [Concomitant]
     Active Substance: CARVEDILOL
     Indication: Cardiac disorder
     Dosage: 6.5MG TABLET TWICE A DAY BY MOUTH
     Route: 048
  10. PROCHLORPERAZINE EDISYLATE [Concomitant]
     Active Substance: PROCHLORPERAZINE EDISYLATE
     Indication: Nausea
     Dosage: 10MG LITTLE TABLET ONE HALF HOUR BEFORE TAKING IBRANCE BY MOUTH
     Route: 048
  11. PLAVIX [Concomitant]
     Active Substance: CLOPIDOGREL BISULFATE
     Dosage: 75MG TABLET ONCE A DAY WITH WATER

REACTIONS (38)
  - Pulmonary congestion [Unknown]
  - Pharyngeal haemorrhage [Unknown]
  - Neuropathy peripheral [Unknown]
  - Vertigo [Unknown]
  - Dysgeusia [Not Recovered/Not Resolved]
  - Ageusia [Unknown]
  - Swollen tongue [Not Recovered/Not Resolved]
  - Glossitis [Not Recovered/Not Resolved]
  - Stomatitis [Not Recovered/Not Resolved]
  - Saliva altered [Unknown]
  - Breath odour [Unknown]
  - Chapped lips [Not Recovered/Not Resolved]
  - Dysarthria [Not Recovered/Not Resolved]
  - Slow response to stimuli [Unknown]
  - Epistaxis [Not Recovered/Not Resolved]
  - Haemoptysis [Unknown]
  - Oropharyngeal pain [Unknown]
  - Productive cough [Unknown]
  - Diarrhoea [Unknown]
  - Tinea cruris [Not Recovered/Not Resolved]
  - Night sweats [Unknown]
  - Oedema peripheral [Not Recovered/Not Resolved]
  - Dysuria [Not Recovered/Not Resolved]
  - Urinary tract pain [Not Recovered/Not Resolved]
  - Alopecia [Unknown]
  - Anorectal discomfort [Unknown]
  - Illness [Unknown]
  - Dyslexia [Not Recovered/Not Resolved]
  - Asthenia [Unknown]
  - Lip dry [Unknown]
  - Oral pain [Unknown]
  - Hyperhidrosis [Unknown]
  - Fatigue [Unknown]
  - Paraesthesia [Unknown]
  - Muscle spasms [Unknown]
  - Dry mouth [Unknown]
  - Taste disorder [Unknown]
  - Arthropathy [Unknown]

NARRATIVE: CASE EVENT DATE: 20240212
